FAERS Safety Report 8456971-X (Version None)
Quarter: 2012Q2

REPORT INFORMATION
  Report Type: 
  Country: None (occurrence: None)
  Receive Date: 20120323
  Receipt Date: 20110906
  Transmission Date: 20120825
  Serious: Yes (Hospitalization)
  Sender: FDA-Public Use
  Company Number: 163-21880-11090689

PATIENT
  Age: 66 Year
  Sex: Male

DRUGS (13)
  1. IRON DEXTRAN (IRON DEXTRAN) [Concomitant]
  2. NIFEDIPINE [Concomitant]
  3. SIMVASTATIN [Concomitant]
  4. ACYCLOVIR [Concomitant]
  5. CALCIUM CARBONATE [Concomitant]
  6. CITALOPRAM HYDROBROMIDE [Concomitant]
  7. DIOVAN [Concomitant]
  8. EPOGEN [Concomitant]
  9. HYDRLAZINE (HYDRALAZINE) [Concomitant]
  10. REVLIMID [Suspect]
     Indication: MULTIPLE MYELOMA
     Dosage: 2.1429 MG, 3 IN 1 WK, PO
     Route: 048
     Dates: start: 20110501
  11. CARVEDILOL [Concomitant]
  12. RANITIDINE HYDROCHLORIDE [Concomitant]
  13. RENA-VITE (NEPHROVITE) [Concomitant]

REACTIONS (2)
  - DYSPNOEA [None]
  - HYPOTENSION [None]
